FAERS Safety Report 14339820 (Version 4)
Quarter: 2018Q1

REPORT INFORMATION
  Report Type: Spontaneous
  Country: DE (occurrence: DE)
  Receive Date: 20171230
  Receipt Date: 20180209
  Transmission Date: 20180509
  Serious: Yes (Life-Threatening, Hospitalization, Other)
  Sender: FDA-Public Use
  Company Number: DE-MYLANLABS-2017M1082884

PATIENT
  Age: 30 Year
  Sex: Male

DRUGS (7)
  1. AMPICILLIN/SULBACTAM [Suspect]
     Active Substance: AMPICILLIN SODIUM\SULBACTAM SODIUM
     Indication: PERIODONTITIS
     Dosage: UNK
     Route: 042
  2. AMPICILLIN/SULBACTAM [Suspect]
     Active Substance: AMPICILLIN SODIUM\SULBACTAM SODIUM
     Indication: INFECTION
     Dosage: UNK
     Route: 065
  3. CIPROFLOXACIN. [Suspect]
     Active Substance: CIPROFLOXACIN
     Indication: PRODUCT USED FOR UNKNOWN INDICATION
     Dosage: UNK
     Route: 065
  4. BENZYLPENICILLIN [Suspect]
     Active Substance: PENICILLIN G
     Indication: INFECTION
  5. CIPROFLOXACIN. [Suspect]
     Active Substance: CIPROFLOXACIN
     Indication: PERIODONTITIS
     Dosage: 1 G, QD
     Route: 065
  6. BENZYLPENICILLIN [Suspect]
     Active Substance: PENICILLIN G
     Indication: PERIODONTITIS
     Dosage: UNK
     Route: 042
  7. AMOXICILLIN. [Suspect]
     Active Substance: AMOXICILLIN
     Indication: PERIODONTITIS
     Dosage: UNK
     Route: 048

REACTIONS (17)
  - Tachypnoea [Recovered/Resolved]
  - Protein total decreased [None]
  - Hypovolaemia [None]
  - Conjunctivitis [Unknown]
  - Dyspnoea [Recovered/Resolved]
  - Hypervolaemia [Unknown]
  - Skin reaction [None]
  - Hypotension [Recovering/Resolving]
  - Oedema peripheral [Recovered/Resolved]
  - Enterococcus test positive [None]
  - Propionibacterium test positive [None]
  - Staphylococcus test positive [None]
  - Acute generalised exanthematous pustulosis [Recovering/Resolving]
  - Hepatic enzyme increased [Unknown]
  - Systemic inflammatory response syndrome [Unknown]
  - Renal impairment [Unknown]
  - Tachycardia [Recovered/Resolved]
